FAERS Safety Report 8993535 (Version 1)
Quarter: 2013Q1

REPORT INFORMATION
  Report Type: Report from Study
  Country: US (occurrence: US)
  Receive Date: 20130102
  Receipt Date: 20130102
  Transmission Date: 20140127
  Serious: Yes (Death, Life-Threatening, Hospitalization)
  Sender: FDA-Public Use
  Company Number: US-BRISTOL-MYERS SQUIBB COMPANY-15110638

PATIENT
  Age: 66 Year
  Sex: Male

DRUGS (13)
  1. DASATINIB [Suspect]
     Indication: PROSTATE CANCER
     Dosage: INTERRUPTED ON 16MAY2012
     Route: 048
     Dates: start: 20100510
  2. TAXOTERE [Suspect]
     Indication: PROSTATE CANCER
     Dosage: NO OF COURSES:1?LAST DOSE ON 10MAY2010
     Route: 042
     Dates: start: 20100510, end: 20100510
  3. PREDNISONE [Suspect]
     Indication: PROSTATE CANCER
     Dosage: LAST DOSE ON 16MAY2010
     Route: 048
     Dates: start: 20100510, end: 20100516
  4. DEXAMETHASONE [Suspect]
     Indication: PREMEDICATION
  5. NAPROSYN [Concomitant]
  6. BUMETANIDE [Concomitant]
  7. WARFARIN [Concomitant]
  8. TERAZOSIN [Concomitant]
  9. SIMVASTATIN [Concomitant]
  10. BENAZEPRIL HCL [Concomitant]
  11. DIGOXIN [Concomitant]
  12. COMPAZINE [Concomitant]
  13. KLOR-CON [Concomitant]
     Dosage: KLOR-CON 8

REACTIONS (2)
  - Acute respiratory failure [Fatal]
  - Febrile neutropenia [Not Recovered/Not Resolved]
